FAERS Safety Report 23778084 (Version 1)
Quarter: 2024Q2

REPORT INFORMATION
  Report Type: Spontaneous
  Country: US (occurrence: None)
  Receive Date: 20240423
  Receipt Date: 20240423
  Transmission Date: 20240716
  Serious: No
  Sender: FDA-Public Use
  Company Number: None

PATIENT
  Age: 48 Year
  Sex: Female

DRUGS (2)
  1. ENBREL [Suspect]
     Active Substance: BENZYL ALCOHOL\ETANERCEPT
     Indication: Psoriatic arthropathy
     Dosage: 50MG WEEKLY
  2. MOUNJARO [Suspect]
     Active Substance: TIRZEPATIDE

REACTIONS (2)
  - Type 2 diabetes mellitus [None]
  - Abdominal pain upper [None]
